FAERS Safety Report 24027960 (Version 1)
Quarter: 2024Q2

REPORT INFORMATION
  Report Type: Spontaneous
  Country: ZA (occurrence: None)
  Receive Date: 20240628
  Receipt Date: 20240628
  Transmission Date: 20240716
  Serious: Yes (Hospitalization)
  Sender: FDA-Public Use
  Company Number: 2024A144388

PATIENT
  Age: 22280 Day
  Sex: Female

DRUGS (30)
  1. DAPAGLIFLOZIN PROPANEDIOL [Suspect]
     Active Substance: DAPAGLIFLOZIN PROPANEDIOL
     Indication: Type 2 diabetes mellitus
     Route: 048
  2. ATORVASTATIN [Concomitant]
     Active Substance: ATORVASTATIN
  3. AZITHROMYCIN [Concomitant]
     Active Substance: AZITHROMYCIN
  4. PREDNISONE [Concomitant]
     Active Substance: PREDNISONE
  5. BETASLEEP [Concomitant]
  6. CATAFLAM [Concomitant]
     Active Substance: DICLOFENAC POTASSIUM
  7. DESLORATADINE [Concomitant]
     Active Substance: DESLORATADINE
  8. FUROSEMIDE [Concomitant]
     Active Substance: FUROSEMIDE
  9. EUTHYROX [Concomitant]
     Active Substance: LEVOTHYROXINE SODIUM
  10. ILIADIN [Concomitant]
  11. PREDNISONE [Concomitant]
     Active Substance: PREDNISONE
  12. OXAZEPAM [Concomitant]
     Active Substance: OXAZEPAM
  13. REHIDRAT [Concomitant]
  14. SALEX [Concomitant]
     Active Substance: SALICYLIC ACID
  15. ZOPICLONE [Concomitant]
     Active Substance: ZOPICLONE
  16. SOMNIL [Concomitant]
  17. CLOPIDOGREL BISULFATE [Concomitant]
     Active Substance: CLOPIDOGREL BISULFATE
     Route: 048
  18. PLENISH-K SR [Concomitant]
     Indication: Hypokalaemia
     Route: 048
  19. SPIRACTIN [Concomitant]
     Indication: Hypertension
     Route: 048
  20. CARVEDILOL [Concomitant]
     Active Substance: CARVEDILOL
     Indication: Hypertension
     Route: 048
  21. RIVAROXABAN [Concomitant]
     Active Substance: RIVAROXABAN
     Indication: Anticoagulant therapy
     Route: 041
  22. THIAMINE [Concomitant]
     Active Substance: THIAMINE
     Route: 048
  23. ESOMEPRAZOLE [Concomitant]
     Active Substance: ESOMEPRAZOLE
     Indication: Gastrooesophageal reflux disease
     Route: 048
  24. ESOMEPRAZOLE [Concomitant]
     Active Substance: ESOMEPRAZOLE
     Indication: Gastrooesophageal reflux disease
     Route: 048
  25. VORTIOXETINE LUNDBECK [Concomitant]
     Indication: Depression
     Route: 048
  26. ANDOLEX [Concomitant]
  27. CATAFLAM D [Concomitant]
  28. LINCTOPENT [Concomitant]
  29. VALPROIC ACID [Concomitant]
     Active Substance: VALPROIC ACID
  30. STILPANE [Concomitant]

REACTIONS (1)
  - Thrombosis [Unknown]
